FAERS Safety Report 5597005-4 (Version None)
Quarter: 2008Q1

REPORT INFORMATION
  Report Type: 
  Country: None (occurrence: None)
  Receive Date: 20080121
  Receipt Date: 20080109
  Transmission Date: 20080703
  Serious: Yes (Life-Threatening)
  Sender: FDA-Public Use
  Company Number: US-WYE-H00965607

PATIENT
  Sex: Female

DRUGS (2)
  1. EFFEXOR XR [Suspect]
     Route: 048
  2. EFFEXOR XR [Suspect]
     Dosage: DOSE AND FREQUENCY UNSPECIFIED

REACTIONS (5)
  - DEPRESSION [None]
  - DRUG WITHDRAWAL SYNDROME [None]
  - MIGRAINE [None]
  - SUICIDAL IDEATION [None]
  - SUICIDE ATTEMPT [None]
